FAERS Safety Report 6311359-2 (Version None)
Quarter: 2009Q3

REPORT INFORMATION
  Report Type: 
  Country: None (occurrence: None)
  Receive Date: 20090817
  Receipt Date: 20090807
  Transmission Date: 20100115
  Serious: Yes (Other)
  Sender: FDA-Public Use
  Company Number: PHHY2009CA33991

PATIENT
  Sex: Male

DRUGS (2)
  1. ZOMETA [Suspect]
     Indication: PROSTATE CANCER METASTATIC
     Dosage: 4 MG EVERY 12 WEEKS
     Dates: start: 20090616
  2. TRAMACET [Concomitant]

REACTIONS (2)
  - ARTHRALGIA [None]
  - BLOOD UREA INCREASED [None]
